FAERS Safety Report 6354276-4 (Version None)
Quarter: 2009Q3

REPORT INFORMATION
  Report Type: 
  Country: None (occurrence: None)
  Receive Date: 20090914
  Receipt Date: 20090902
  Transmission Date: 20100115
  Serious: Yes (Other)
  Sender: FDA-Public Use
  Company Number: PHHY2009PT37766

PATIENT
  Sex: Male

DRUGS (2)
  1. ZOMETA [Suspect]
     Indication: METASTASES TO BONE
     Dosage: UNKNOWN DOSE EVERY 4 WEEKS
     Dates: start: 20080101, end: 20090618
  2. EXEMESTANE [Concomitant]
     Indication: BREAST CANCER
     Dosage: UNK
     Dates: start: 20070701

REACTIONS (2)
  - OSTEONECROSIS [None]
  - TOOTH EXTRACTION [None]
